FAERS Safety Report 10136314 (Version 2)
Quarter: 2014Q2

REPORT INFORMATION
  Report Type: Spontaneous
  Country: FR (occurrence: FR)
  Receive Date: 20140429
  Receipt Date: 20140521
  Transmission Date: 20141212
  Serious: No
  Sender: FDA-Public Use
  Company Number: FR-JNJFOC-20140410318

PATIENT
  Sex: Female
  Weight: 40 kg

DRUGS (1)
  1. DUROGESIC [Suspect]
     Indication: PAIN
     Dosage: FOR A DURATION OF 3 MONTHS
     Route: 062

REACTIONS (1)
  - Drug prescribing error [Unknown]
